FAERS Safety Report 7346323-8 (Version None)
Quarter: 2011Q1

REPORT INFORMATION
  Report Type: 
  Country: None (occurrence: None)
  Receive Date: 20110228
  Receipt Date: 20110210
  Transmission Date: 20110831
  Serious: Yes (Hospitalization)
  Sender: FDA-Public Use
  Company Number: DEP_00471_2011

PATIENT
  Sex: Male

DRUGS (7)
  1. IRBESARTAN [Concomitant]
  2. CIPROFLOXACIN [Suspect]
     Indication: EPIDIDYMITIS
     Dosage: (1000 MG, DAILY ORAL)
     Route: 048
     Dates: start: 20101218, end: 20101224
  3. CYCLOSPORINE [Concomitant]
  4. INSULIN [Concomitant]
  5. INTERFERON ALFA-2A [Concomitant]
  6. AZATIOPRIN [Concomitant]
  7. ZEFFIX [Concomitant]

REACTIONS (3)
  - DERMATITIS PSORIASIFORM [None]
  - ARTHRITIS [None]
  - ERYTHEMA [None]
